FAERS Safety Report 4477757-7 (Version None)
Quarter: 2004Q4

REPORT INFORMATION
  Report Type: 
  Country: None (occurrence: None)
  Receive Date: 20041014
  Receipt Date: 20040929
  Transmission Date: 20050328
  Serious: Yes (Hospitalization)
  Sender: FDA-Public Use
  Company Number: DSA_81084_2004

PATIENT
  Age: 52 Year
  Sex: Female
  Weight: 90.7194 kg

DRUGS (8)
  1. XYREM [Suspect]
     Dosage: 4.5 G NIGHTLY PO
     Route: 048
     Dates: start: 20040821, end: 20040830
  2. GLUCOPHAGE [Concomitant]
  3. DEXEDRINE [Concomitant]
  4. IMIPRAM TAB [Concomitant]
  5. ZOCOR [Concomitant]
  6. VASOTEC [Concomitant]
  7. C-PAP [Concomitant]
  8. AMBIEN [Concomitant]

REACTIONS (5)
  - DIZZINESS [None]
  - FLUSHING [None]
  - HYPERSENSITIVITY [None]
  - HYPOTENSION [None]
  - NAUSEA [None]
